FAERS Safety Report 10683056 (Version 4)
Quarter: 2015Q2

REPORT INFORMATION
  Report Type: Report from Study
  Country: US (occurrence: US)
  Receive Date: 20141230
  Receipt Date: 20150605
  Transmission Date: 20150821
  Serious: Yes (Hospitalization)
  Sender: FDA-Public Use
  Company Number: US-GILEAD-2014-0129218

PATIENT
  Age: 69 Year
  Sex: Female

DRUGS (2)
  1. VELETRI [Concomitant]
     Active Substance: EPOPROSTENOL
  2. AMBRISENTAN [Suspect]
     Active Substance: AMBRISENTAN
     Indication: PULMONARY ARTERIAL HYPERTENSION
     Dosage: 10 MG, QD
     Route: 065
     Dates: start: 20131112

REACTIONS (7)
  - Catheter site inflammation [Unknown]
  - Catheter site rash [Unknown]
  - Skin infection [Unknown]
  - Catheter site erythema [Unknown]
  - Skin maceration [Unknown]
  - Application site erythema [Not Recovered/Not Resolved]
  - Catheter site swelling [Unknown]
